FAERS Safety Report 5109985-1 (Version None)
Quarter: 2006Q3

REPORT INFORMATION
  Report Type: 
  Country: None (occurrence: None)
  Receive Date: 20060918
  Receipt Date: 20060918
  Transmission Date: 20061208
  Serious: Yes (Other)
  Sender: FDA-Public Use
  Company Number: None

PATIENT
  Age: 67 Year
  Sex: Female
  Weight: 62.1428 kg

DRUGS (11)
  1. SERTRALINE [Suspect]
     Indication: MAJOR DEPRESSION
     Dosage: 100 MG + PO DAILY
     Route: 048
     Dates: start: 20060901
  2. MICARDIS [Concomitant]
  3. CALCIUM GLUCONATE [Concomitant]
  4. LORTADINE [Concomitant]
  5. NASONEX [Concomitant]
  6. LIPITOR [Concomitant]
  7. HYDROCHLOROTHIAZDE TAB [Concomitant]
  8. TRICOR [Concomitant]
  9. ASPIRIN [Concomitant]
  10. LEVOTHYROXINE SODIUM [Concomitant]
  11. PROGLITAZONE [Concomitant]

REACTIONS (4)
  - DIARRHOEA [None]
  - HEADACHE [None]
  - NAUSEA [None]
  - THERAPEUTIC RESPONSE UNEXPECTED WITH DRUG SUBSTITUTION [None]
